FAERS Safety Report 5376479-8 (Version None)
Quarter: 2007Q3

REPORT INFORMATION
  Report Type: 
  Country: None (occurrence: None)
  Receive Date: 20070702
  Receipt Date: 20070618
  Transmission Date: 20080115
  Serious: Yes (Hospitalization)
  Sender: FDA-Public Use
  Company Number: DE-GENENTECH-243151

PATIENT
  Sex: Male

DRUGS (1)
  1. EFALIZUMAB [Suspect]
     Indication: PSORIASIS
     Dosage: 0.9 UNK, 1/WEEK
     Route: 058
     Dates: start: 20070106, end: 20070407

REACTIONS (4)
  - ANAEMIA [None]
  - LUPUS-LIKE SYNDROME [None]
  - VITAMIN B1 DEFICIENCY [None]
  - VITAMIN B12 DEFICIENCY [None]
